FAERS Safety Report 4448081-3 (Version None)
Quarter: 2004Q3

REPORT INFORMATION
  Report Type: 
  Country: None (occurrence: None)
  Receive Date: 20040712
  Receipt Date: 20040623
  Transmission Date: 20050211
  Serious: No
  Sender: FDA-Public Use
  Company Number: USA040670848

PATIENT
  Sex: Male

DRUGS (1)
  1. CIALIS [Suspect]
     Indication: ERECTILE DYSFUNCTION
     Dosage: 20 MG DAY

REACTIONS (4)
  - BACK PAIN [None]
  - FLUSHING [None]
  - HEADACHE [None]
  - PAIN IN EXTREMITY [None]
